FAERS Safety Report 7074425-2 (Version None)
Quarter: 2010Q4

REPORT INFORMATION
  Report Type: 
  Country: None (occurrence: None)
  Receive Date: 20101021
  Receipt Date: 20101007
  Transmission Date: 20110411
  Serious: Yes (Hospitalization)
  Sender: FDA-Public Use
  Company Number: 020021

PATIENT
  Sex: Female
  Weight: 56.7 kg

DRUGS (3)
  1. CIMZIA [Suspect]
     Indication: CROHN'S DISEASE
     Dosage: (400 MG 1X/MONTH SUBCUTANEOUS)
     Route: 058
     Dates: start: 20100701
  2. PREDNI-DOME [Concomitant]
  3. CALCIUM [Concomitant]

REACTIONS (1)
  - INTESTINAL PERFORATION [None]
